FAERS Safety Report 20752985 (Version 1)
Quarter: 2022Q2

REPORT INFORMATION
  Report Type: Spontaneous
  Country: US (occurrence: None)
  Receive Date: 20220426
  Receipt Date: 20220426
  Transmission Date: 20220721
  Serious: No
  Sender: FDA-Public Use
  Company Number: US-ROCHE-2950408

PATIENT
  Sex: Female

DRUGS (1)
  1. ESBRIET [Suspect]
     Active Substance: PIRFENIDONE
     Indication: Interstitial lung disease
     Dosage: 267 MG 1 TABLET TO BE TAKEN BY MOUTH FOR 1 WEEK THEN 2 TABLETS 3 TIMES A FOR WEEK 2 AND THEN 801 MG
     Route: 048
     Dates: start: 20211013

REACTIONS (5)
  - Diarrhoea [Unknown]
  - Dyspepsia [Unknown]
  - Fatigue [Unknown]
  - Illness [Unknown]
  - Asthenia [Unknown]
